FAERS Safety Report 26102223 (Version 1)
Quarter: 2025Q4

REPORT INFORMATION
  Report Type: Spontaneous
  Country: US (occurrence: None)
  Receive Date: 20251125
  Receipt Date: 20251125
  Transmission Date: 20260117
  Serious: No
  Sender: FDA-CTU
  Company Number: None

PATIENT
  Sex: Female

DRUGS (1)
  1. LACTIC ACID [Suspect]
     Active Substance: LACTIC ACID
     Dosage: 2 AN - AS NECESSARY  ?
     Dates: start: 20250301, end: 20250301

REACTIONS (6)
  - Application site erythema [None]
  - Application site burn [None]
  - Application site pain [None]
  - Expired product administered [None]
  - Sensitive skin [None]
  - Application site scar [None]

NARRATIVE: CASE EVENT DATE: 20250301
